FAERS Safety Report 20153260 (Version 1)
Quarter: 2021Q4

REPORT INFORMATION
  Report Type: Spontaneous
  Country: None (occurrence: US)
  Receive Date: 20211206
  Receipt Date: 20211206
  Transmission Date: 20220304
  Serious: No
  Sender: FDA-Public Use
  Company Number: US-Mission Pharmacal Company-2122726

PATIENT
  Age: 15 Year
  Sex: Female

DRUGS (1)
  1. THIOLA EC [Suspect]
     Active Substance: TIOPRONIN
     Indication: Cystinuria
     Route: 048
     Dates: start: 20210820

REACTIONS (2)
  - Abnormal weight gain [Recovering/Resolving]
  - Fluid retention [Recovering/Resolving]
